FAERS Safety Report 21890261 (Version 5)
Quarter: 2024Q1

REPORT INFORMATION
  Report Type: Spontaneous
  Country: US (occurrence: US)
  Receive Date: 20230120
  Receipt Date: 20240207
  Transmission Date: 20240410
  Serious: No
  Sender: FDA-Public Use
  Company Number: US-PFIZER INC-PV202300011667

PATIENT
  Age: 69 Year
  Sex: Female
  Weight: 49.887 kg

DRUGS (1)
  1. PREMPRO [Suspect]
     Active Substance: ESTROGENS, CONJUGATED\MEDROXYPROGESTERONE ACETATE
     Indication: Hot flush
     Dosage: 0.3 MG/1.5MG
     Dates: start: 2009

REACTIONS (1)
  - Withdrawal syndrome [Unknown]
